FAERS Safety Report 7678465-1 (Version None)
Quarter: 2011Q3

REPORT INFORMATION
  Report Type: 
  Country: None (occurrence: None)
  Receive Date: 20110811
  Receipt Date: 20110808
  Transmission Date: 20111222
  Serious: Yes (Other)
  Sender: FDA-Public Use
  Company Number: CZ-ROCHE-786008

PATIENT
  Sex: Female
  Weight: 64 kg

DRUGS (5)
  1. CORTICOSTEROIDS [Concomitant]
  2. MEDROL [Concomitant]
     Dates: start: 20100101
  3. TRIAMCINOLONE [Concomitant]
     Dates: end: 20100101
  4. BONIVA [Suspect]
     Route: 042
     Dates: start: 20100621
  5. BONIVA [Suspect]
     Indication: OSTEOPOROSIS POSTMENOPAUSAL
     Route: 048
     Dates: start: 20071101, end: 20100621

REACTIONS (2)
  - GASTROINTESTINAL DISORDER [None]
  - OSTEONECROSIS OF JAW [None]
